FAERS Safety Report 15836427 (Version 1)
Quarter: 2019Q1

REPORT INFORMATION
  Report Type: Spontaneous
  Country: PT (occurrence: PT)
  Receive Date: 20190117
  Receipt Date: 20190117
  Transmission Date: 20190417
  Serious: Yes (Hospitalization, Other)
  Sender: FDA-Public Use
  Company Number: PT-TEVA-2019-PT-998215

PATIENT
  Age: 48 Year
  Sex: Female

DRUGS (3)
  1. PREDNISOLONE. [Concomitant]
     Active Substance: PREDNISOLONE
     Indication: LUNG TRANSPLANT
     Route: 065
  2. TACROLIMUS. [Suspect]
     Active Substance: TACROLIMUS
     Indication: LUNG TRANSPLANT
     Route: 065
  3. EVEROLIMUS. [Concomitant]
     Active Substance: EVEROLIMUS
     Indication: LUNG TRANSPLANT
     Route: 065

REACTIONS (1)
  - Thrombotic microangiopathy [Recovering/Resolving]
